FAERS Safety Report 5769552-3 (Version None)
Quarter: 2008Q2

REPORT INFORMATION
  Report Type: 
  Country: None (occurrence: None)
  Receive Date: 20080612
  Receipt Date: 20080402
  Transmission Date: 20081010
  Serious: No
  Sender: FDA-Public Use
  Company Number: US-ABBOTT-08P-163-0445319-00

PATIENT
  Sex: Female
  Weight: 114.54 kg

DRUGS (6)
  1. HUMIRA [Suspect]
     Indication: CROHN'S DISEASE
     Dosage: X FOUR
     Route: 058
     Dates: start: 20080129
  2. HUMIRA [Suspect]
     Dosage: X TWO
     Route: 058
     Dates: start: 20080129
  3. HUMIRA [Suspect]
     Route: 058
     Dates: start: 20080129
  4. HYDROCORTISONE CREAM [Concomitant]
     Indication: RASH
     Route: 061
     Dates: start: 20080101
  5. LANSOPRAZOLE [Concomitant]
     Indication: GASTRIC PH DECREASED
     Route: 048
  6. MAXALL [Concomitant]
     Indication: HEADACHE
     Route: 048
     Dates: start: 20080101

REACTIONS (1)
  - RASH GENERALISED [None]
